FAERS Safety Report 6553889-4 (Version None)
Quarter: 2010Q1

REPORT INFORMATION
  Report Type: 
  Country: None (occurrence: None)
  Receive Date: 20100127
  Receipt Date: 20100119
  Transmission Date: 20100710
  Serious: Yes (Other)
  Sender: FDA-Public Use
  Company Number: IT-TEVA-221416ISR

PATIENT
  Sex: Male

DRUGS (1)
  1. RISPERIDONE [Suspect]
     Route: 048
     Dates: start: 20091205, end: 20091214

REACTIONS (2)
  - AGGRESSION [None]
  - AGITATION [None]
